FAERS Safety Report 5665108-1 (Version None)
Quarter: 2008Q1

REPORT INFORMATION
  Report Type: 
  Country: None (occurrence: None)
  Receive Date: 20080314
  Receipt Date: 20040823
  Transmission Date: 20080703
  Serious: No
  Sender: FDA-Public Use
  Company Number: US-ABBOTT-03P-163-0219423-00

PATIENT
  Sex: Female
  Weight: 61.29 kg

DRUGS (9)
  1. HUMIRA [Suspect]
     Indication: RHEUMATOID ARTHRITIS
     Route: 058
     Dates: start: 20030201, end: 20040823
  2. HUMIRA [Suspect]
     Route: 058
     Dates: start: 20040823
  3. VENLAFAXINE HYDROCHLORIDE [Concomitant]
     Indication: DEPRESSION
     Route: 048
     Dates: start: 20020101
  4. VENLAFAXINE HYDROCHLORIDE [Concomitant]
     Route: 048
     Dates: start: 19950101
  5. VENLAFAXINE HYDROCHLORIDE [Concomitant]
     Route: 048
     Dates: start: 20020101
  6. CLONAZEPAM [Concomitant]
     Indication: INSOMNIA
     Route: 048
     Dates: start: 20030101
  7. METHOTREXATE [Concomitant]
     Indication: PAIN
     Route: 048
     Dates: start: 20030501
  8. PROPACET 100 [Concomitant]
     Indication: PAIN
     Dosage: 100 - 650
     Route: 048
     Dates: start: 19920101
  9. PARACETAMOL [Concomitant]
     Indication: PAIN
     Route: 048
     Dates: start: 20000101

REACTIONS (6)
  - ARTHRALGIA [None]
  - BACK PAIN [None]
  - DRUG INEFFECTIVE [None]
  - PAIN [None]
  - PYREXIA [None]
  - URINARY TRACT INFECTION [None]
